FAERS Safety Report 10227588 (Version 1)
Quarter: 2014Q2

REPORT INFORMATION
  Report Type: Spontaneous
  Country: US (occurrence: None)
  Receive Date: 20140609
  Receipt Date: 20140609
  Transmission Date: 20141212
  Serious: Yes (Hospitalization)
  Sender: FDA-Public Use
  Company Number: None

PATIENT
  Age: 9 Year
  Sex: Female
  Weight: 21.77 kg

DRUGS (5)
  1. EXJADE [Suspect]
     Indication: THALASSAEMIA
     Route: 048
     Dates: start: 20111031
  2. RANITADINE [Concomitant]
  3. PREDNISONE [Concomitant]
  4. AMLODIPINE [Concomitant]
  5. PEN VK [Concomitant]

REACTIONS (1)
  - Investigation [None]
